FAERS Safety Report 18880031 (Version 1)
Quarter: 2021Q1

REPORT INFORMATION
  Report Type: Spontaneous
  Country: CH (occurrence: CH)
  Receive Date: 20210211
  Receipt Date: 20210211
  Transmission Date: 20210420
  Serious: Yes (Other)
  Sender: FDA-Public Use
  Company Number: CH-TEVA-2021-CH-1878641

PATIENT

DRUGS (2)
  1. PARAPLATIN [Suspect]
     Active Substance: CARBOPLATIN
     Route: 065
  2. PACLITAXEL. [Suspect]
     Active Substance: PACLITAXEL
     Route: 065

REACTIONS (2)
  - Oesophageal adenocarcinoma [Unknown]
  - Metastases to lung [Unknown]
